FAERS Safety Report 9089722 (Version 1)
Quarter: 2013Q1

REPORT INFORMATION
  Report Type: Spontaneous
  Country: US (occurrence: US)
  Receive Date: 20130131
  Receipt Date: 20130131
  Transmission Date: 20140127
  Serious: Yes (Death, Other)
  Sender: FDA-Public Use
  Company Number: PHHY2013US008432

PATIENT
  Age: 84 Year
  Sex: Female

DRUGS (1)
  1. ASCRIPTIN BUFFERED ARTHRITISPAIN CAPLETS [Suspect]
     Indication: ARTHRITIS
     Dosage: 12 DF, DAILY
     Route: 048
     Dates: end: 1995

REACTIONS (4)
  - Death [Fatal]
  - Dementia Alzheimer^s type [Unknown]
  - Incorrect dose administered [Unknown]
  - Incorrect drug administration duration [Unknown]
